FAERS Safety Report 6692396-5 (Version None)
Quarter: 2010Q2

REPORT INFORMATION
  Report Type: 
  Country: None (occurrence: None)
  Receive Date: 20100413
  Receipt Date: 20100331
  Transmission Date: 20101027
  Serious: Yes (Other)
  Sender: FDA-Public Use
  Company Number: ES-IGSA-IG661

PATIENT
  Age: 65 Year

DRUGS (1)
  1. FLEBOGAMMA [Suspect]
     Indication: BLOOD IMMUNOGLOBULIN G DECREASED
     Dosage: IV, FOR  YEARS
     Route: 042
     Dates: start: 20071101

REACTIONS (8)
  - ABDOMINAL PAIN UPPER [None]
  - ALANINE AMINOTRANSFERASE INCREASED [None]
  - ANTI-HBC ANTIBODY POSITIVE [None]
  - ANTI-HBC IGG ANTIBODY POSITIVE [None]
  - ASPARTATE AMINOTRANSFERASE INCREASED [None]
  - BLOOD ALKALINE PHOSPHATASE INCREASED [None]
  - GASTROINTESTINAL DISORDER [None]
  - HEPATITIS C ANTIBODY POSITIVE [None]
